FAERS Safety Report 5875965-1 (Version None)
Quarter: 2008Q3

REPORT INFORMATION
  Report Type: 
  Country: None (occurrence: None)
  Receive Date: 20080905
  Receipt Date: 20080828
  Transmission Date: 20090109
  Serious: Yes (Other)
  Sender: FDA-Public Use
  Company Number: DSA_30267_2007

PATIENT
  Sex: Female

DRUGS (3)
  1. TEMESTA [Suspect]
     Indication: DRUG USE FOR UNKNOWN INDICATION
     Dosage: (DF)
  2. EFEXOR ER (EFEXOR ER- VENLAFAXINE HYDROCHLORIDE CAPSULE, EXTENDED RELE [Suspect]
     Indication: MAJOR DEPRESSION
     Dosage: 300 MG QD ORAL
  3. LITHIOFOR (LITHIOFOR - LITHIUM) (NOT SPECIFIED) [Suspect]
     Indication: DRUG USE FOR UNKNOWN INDICATION
     Dosage: (DF)

REACTIONS (2)
  - ABORTION [None]
  - DRUG EXPOSURE DURING PREGNANCY [None]
